FAERS Safety Report 21707029 (Version 1)
Quarter: 2022Q4

REPORT INFORMATION
  Report Type: Report from Study
  Country: IE (occurrence: IE)
  Receive Date: 20221209
  Receipt Date: 20221209
  Transmission Date: 20230113
  Serious: Yes (Hospitalization)
  Sender: FDA-Public Use
  Company Number: IE-TAKEDA-2022TUS086895

PATIENT
  Sex: Male

DRUGS (1)
  1. HUMAN IMMUNOGLOBULIN G\HYALURONIDASE RECOMBINANT HUMAN [Suspect]
     Active Substance: HUMAN IMMUNOGLOBULIN G\HYALURONIDASE RECOMBINANT HUMAN
     Indication: Nervous system disorder
     Dosage: UNK
     Route: 050
     Dates: start: 20221114

REACTIONS (4)
  - Neurological symptom [Unknown]
  - Infusion site erythema [Unknown]
  - Condition aggravated [Unknown]
  - Off label use [Unknown]
